FAERS Safety Report 12962093 (Version 1)
Quarter: 2016Q4

REPORT INFORMATION
  Report Type: Spontaneous
  Country: US (occurrence: US)
  Receive Date: 20161121
  Receipt Date: 20161121
  Transmission Date: 20170207
  Serious: No
  Sender: FDA-Public Use
  Company Number: US-COLLEGIUM PHARMACEUTICAL, INC.-2016CGM00012

PATIENT
  Age: 56 Year
  Sex: Male

DRUGS (1)
  1. XTAMPZA ER [Suspect]
     Active Substance: OXYCODONE
     Indication: PAIN
     Dosage: 1 CAPSULES, 2X/DAY (EVERY 12 HOURS)
     Route: 048
     Dates: start: 20160802, end: 20160811

REACTIONS (5)
  - Insomnia [Recovered/Resolved]
  - Agitation [Recovered/Resolved]
  - Restlessness [Recovered/Resolved]
  - Weight decreased [Recovered/Resolved]
  - Tachyphrenia [None]

NARRATIVE: CASE EVENT DATE: 20160802
